FAERS Safety Report 4654225-0 (Version None)
Quarter: 2005Q2

REPORT INFORMATION
  Report Type: 
  Country: None (occurrence: None)
  Receive Date: 20050504
  Receipt Date: 20050421
  Transmission Date: 20051028
  Serious: Yes (Hospitalization, Other)
  Sender: FDA-Public Use
  Company Number: 2005031260

PATIENT
  Age: 55 Year
  Sex: Female
  Weight: 104.3273 kg

DRUGS (17)
  1. BEXTRA [Suspect]
     Indication: OSTEOARTHRITIS
     Dosage: 10 MG (10 MG, 1 IN 1 D), ORAL
     Route: 048
     Dates: start: 20031201, end: 20050301
  2. SERETIDE MITE (FLUTICASONE PROPIONATE, SALMETEROL XINAFOATE) [Concomitant]
  3. SALBUTAMOL (SALBUTAMOL) [Concomitant]
  4. LEVOSALBUTAMOL (LEVOSALBUTAMOL) [Concomitant]
  5. CROMOGLICATE SODIUM (CROMOGLICATE SODIUM) [Concomitant]
  6. MONTELUKAST (MONTELUKAST) [Concomitant]
  7. BUPROPION HYDROCHLORIDE [Concomitant]
  8. GEMFIBROZIL [Concomitant]
  9. SINEMET [Concomitant]
  10. LANSOPRAZOLE [Concomitant]
  11. ASPIRIN [Concomitant]
  12. CENTRUM SILVER (ASCORBIC ACID, CALCIUM, MINERALS NOS, RETINOL, TOCOPHE [Concomitant]
  13. TOCOPHEROL (TOCOPHEROL) [Concomitant]
  14. ASCORBIC ACID [Concomitant]
  15. ALLEGRA [Concomitant]
  16. LOPID [Concomitant]
  17. SONATA [Concomitant]

REACTIONS (5)
  - ARTHRITIS [None]
  - CHOLECYSTITIS [None]
  - CHOLELITHIASIS [None]
  - KNEE ARTHROPLASTY [None]
  - PANCREATITIS [None]
